FAERS Safety Report 7029774-0 (Version None)
Quarter: 2010Q4

REPORT INFORMATION
  Report Type: 
  Country: None (occurrence: None)
  Receive Date: 20101001
  Receipt Date: 20100910
  Transmission Date: 20110411
  Serious: Yes (Congenital Anomaly)
  Sender: FDA-Public Use
  Company Number: 7017160

PATIENT
  Age: 1 Day
  Sex: Male

DRUGS (7)
  1. LEVOTHYROXINE SODIUM [Suspect]
     Indication: HYPOTHYROIDISM
     Dosage: 1 DF91 DF, 1 IN 1 D), TRANSPLACENTAL
     Route: 064
  2. ZOLPIDEM [Suspect]
     Indication: PRODUCT USED FOR UNKNOWN INDICATION
     Dosage: TRANSPLACENTAL
     Route: 064
  3. FOLIC ACID [Suspect]
     Indication: PRODUCT USED FOR UNKNOWN INDICATION
     Dosage: 1 DF (1 DF, 1 IN 1 D), TRANSPLACENTAL
     Route: 064
     Dates: end: 20100101
  4. PROGESTERONE [Suspect]
     Indication: PROPHYLAXIS OF ABORTION
     Dosage: TRANSPLACENTAL
     Route: 064
     Dates: end: 20100101
  5. ASPIRIN [Suspect]
     Indication: PROPHYLAXIS OF ABORTION
     Dosage: TRANSPLACENTAL
     Route: 064
     Dates: end: 20100201
  6. PREDNISONE TAB [Suspect]
     Indication: PROPHYLAXIS OF ABORTION
     Dosage: TRANSPLACENTAL
     Route: 064
  7. PREDNISONE TAB [Concomitant]

REACTIONS (5)
  - AORTIC DISORDER [None]
  - CAESAREAN SECTION [None]
  - FOETAL GROWTH RESTRICTION [None]
  - MATERNAL DRUGS AFFECTING FOETUS [None]
  - VENTRICULAR SEPTAL DEFECT [None]
